FAERS Safety Report 5492165-8 (Version None)
Quarter: 2007Q4

REPORT INFORMATION
  Report Type: 
  Country: None (occurrence: None)
  Receive Date: 20071015
  Receipt Date: 20070626
  Transmission Date: 20080405
  Serious: No
  Sender: FDA-Public Use
  Company Number: 2007SP002379

PATIENT
  Age: 20 Year
  Sex: Male
  Weight: 79.3795 kg

DRUGS (11)
  1. LUNESTA [Suspect]
     Indication: INSOMNIA
     Dosage: 1 MG;PRN;ORAL; 2 MG;PRN;ORAL;3 MG;PRN;ORAL;4 MG;PRN;ORAL;5 MG;PRN;ORAL;6 MG;PRN;ORAL;7 MG;PRN;ORAL
     Route: 048
     Dates: start: 20070101
  2. LUNESTA [Suspect]
     Indication: INSOMNIA
     Dosage: 1 MG;PRN;ORAL; 2 MG;PRN;ORAL;3 MG;PRN;ORAL;4 MG;PRN;ORAL;5 MG;PRN;ORAL;6 MG;PRN;ORAL;7 MG;PRN;ORAL
     Route: 048
     Dates: start: 20070101
  3. LUNESTA [Suspect]
     Indication: INSOMNIA
     Dosage: 1 MG;PRN;ORAL; 2 MG;PRN;ORAL;3 MG;PRN;ORAL;4 MG;PRN;ORAL;5 MG;PRN;ORAL;6 MG;PRN;ORAL;7 MG;PRN;ORAL
     Route: 048
     Dates: start: 20070101
  4. LUNESTA [Suspect]
     Indication: INSOMNIA
     Dosage: 1 MG;PRN;ORAL; 2 MG;PRN;ORAL;3 MG;PRN;ORAL;4 MG;PRN;ORAL;5 MG;PRN;ORAL;6 MG;PRN;ORAL;7 MG;PRN;ORAL
     Route: 048
     Dates: start: 20070101
  5. LUNESTA [Suspect]
     Indication: INSOMNIA
     Dosage: 1 MG;PRN;ORAL; 2 MG;PRN;ORAL;3 MG;PRN;ORAL;4 MG;PRN;ORAL;5 MG;PRN;ORAL;6 MG;PRN;ORAL;7 MG;PRN;ORAL
     Route: 048
     Dates: start: 20070101
  6. LUNESTA [Suspect]
     Indication: INSOMNIA
     Dosage: 1 MG;PRN;ORAL; 2 MG;PRN;ORAL;3 MG;PRN;ORAL;4 MG;PRN;ORAL;5 MG;PRN;ORAL;6 MG;PRN;ORAL;7 MG;PRN;ORAL
     Route: 048
     Dates: start: 20070101
  7. LUNESTA [Suspect]
     Indication: INSOMNIA
     Dosage: 1 MG;PRN;ORAL; 2 MG;PRN;ORAL;3 MG;PRN;ORAL;4 MG;PRN;ORAL;5 MG;PRN;ORAL;6 MG;PRN;ORAL;7 MG;PRN;ORAL
     Route: 048
     Dates: start: 20070501
  8. PERCOCET [Concomitant]
  9. PREVACID [Concomitant]
  10. CELEBREX [Concomitant]
  11. VALIUM [Concomitant]

REACTIONS (1)
  - INITIAL INSOMNIA [None]
